FAERS Safety Report 6233372-6 (Version None)
Quarter: 2009Q2

REPORT INFORMATION
  Report Type: 
  Country: None (occurrence: None)
  Receive Date: 20090617
  Receipt Date: 20090610
  Transmission Date: 20091009
  Serious: Yes (Hospitalization)
  Sender: FDA-Public Use
  Company Number: US-AVENTIS-200913782US

PATIENT
  Age: 61 Year
  Sex: Female
  Weight: 64 kg

DRUGS (14)
  1. TAXOTERE [Suspect]
     Indication: BREAST CANCER FEMALE
     Dates: start: 20090219, end: 20090219
  2. TAXOTERE [Suspect]
     Dates: start: 20090312, end: 20090312
  3. CYCLOPHOSPHAMIDE [Suspect]
     Indication: BREAST CANCER FEMALE
     Dosage: DOSE: UNK
     Dates: start: 20090312, end: 20090312
  4. LORAZEPAM [Concomitant]
     Dosage: DOSE: UNK
  5. ACTOS [Concomitant]
     Dosage: DOSE: UNK
  6. CELEXA [Concomitant]
     Dosage: DOSE: UNK
  7. DOCUSATE SODIUM [Concomitant]
     Dosage: DOSE: UNK
  8. HYDROCHLOROTHIAZIDE [Concomitant]
     Dosage: DOSE: UNK
  9. LANTUS [Concomitant]
     Dosage: DOSE: UNK
  10. METFORMIN HCL [Concomitant]
     Dosage: DOSE: UNK
  11. METOPROLOL SUCCINATE [Concomitant]
     Dosage: DOSE: UNK
  12. OMEPRAZOL [Concomitant]
     Dosage: DOSE: UNK
  13. OXYCONTIN [Concomitant]
     Dosage: DOSE: UNK
  14. PERCOCET [Concomitant]
     Dosage: DOSE: UNK

REACTIONS (4)
  - ASTHENIA [None]
  - GAIT DISTURBANCE [None]
  - MUSCULAR WEAKNESS [None]
  - MYELITIS [None]
